FAERS Safety Report 14833032 (Version 1)
Quarter: 2018Q2

REPORT INFORMATION
  Report Type: Spontaneous
  Country: US (occurrence: US)
  Receive Date: 20180412
  Receipt Date: 20180412
  Transmission Date: 20180711
  Serious: Yes (Death)
  Sender: FDA-Public Use
  Company Number: None

PATIENT
  Age: 69 Year
  Sex: Male
  Weight: 85.5 kg

DRUGS (6)
  1. NUPLAZID [Concomitant]
     Active Substance: PIMAVANSERIN TARTRATE
  2. NUPLAZID [Suspect]
     Active Substance: PIMAVANSERIN TARTRATE
     Indication: PARKINSON^S DISEASE
     Dosage: ?          QUANTITY:2 TABLET(S);?
     Route: 048
     Dates: start: 20171101, end: 20171220
  3. AZILECT [Concomitant]
     Active Substance: RASAGILINE MESYLATE
  4. CITALOPRAM [Concomitant]
     Active Substance: CITALOPRAM HYDROBROMIDE
  5. METOPROLOL TARTA [Concomitant]
  6. CARBIDOPA-LEVODOPA [Concomitant]
     Active Substance: CARBIDOPA\LEVODOPA

REACTIONS (6)
  - Asthenia [None]
  - Confusional state [None]
  - Urinary tract infection [None]
  - Fine motor skill dysfunction [None]
  - Drug ineffective [None]
  - Myocardial infarction [None]

NARRATIVE: CASE EVENT DATE: 20171220
